FAERS Safety Report 6383291-X (Version None)
Quarter: 2009Q4

REPORT INFORMATION
  Report Type: 
  Country: None (occurrence: None)
  Receive Date: 20091001
  Receipt Date: 20090928
  Transmission Date: 20100525
  Serious: Yes (Hospitalization, Other)
  Sender: FDA-Public Use
  Company Number: US-RB-020407-09

PATIENT
  Age: 35 Year
  Sex: Male

DRUGS (7)
  1. BUPRENORPHINE HCL AND NALOXONE HCL [Suspect]
     Indication: DRUG USE FOR UNKNOWN INDICATION
     Dosage: DOSE ESCALATED PER STUDY PROTOCOL
     Route: 060
     Dates: start: 20081105
  2. BUPRENORPHINE HCL AND NALOXONE HCL [Suspect]
     Dosage: MONDAYS 8 MG, WEDNESDAYS 8 MG, AND FRIDAYS 12 MG
     Route: 060
     Dates: start: 20081101
  3. HERBAL BEVERAGE [Concomitant]
     Route: 048
     Dates: start: 20090601
  4. AMITRIPTYLINE [Suspect]
     Indication: INSOMNIA
     Dosage: TOOK UNKNOWN DOSE ONCE DAILY.
     Dates: start: 20090120, end: 20090907
  5. AMITRIPTYLINE [Suspect]
     Dosage: TOOK 20 TABLETS OF AMITRIPTYLINE (DOSE UNKNOWN)
     Route: 048
     Dates: start: 20090908, end: 20090908
  6. METHYL SALICYLATE OINTMENT [Concomitant]
     Dosage: DOSE UNKNOWN
     Route: 065
  7. ACETAMINOPHEN [Concomitant]
     Dosage: DOSE UNKNOWN
     Route: 065

REACTIONS (9)
  - DECREASED INTEREST [None]
  - DEPRESSED MOOD [None]
  - FATIGUE [None]
  - HYPERTENSION [None]
  - INSOMNIA [None]
  - MAJOR DEPRESSION [None]
  - PSYCHOMOTOR RETARDATION [None]
  - SUICIDAL IDEATION [None]
  - SUICIDE ATTEMPT [None]
